FAERS Safety Report 14243820 (Version 1)
Quarter: 2017Q4

REPORT INFORMATION
  Report Type: Spontaneous
  Country: US (occurrence: US)
  Receive Date: 20171201
  Receipt Date: 20171201
  Transmission Date: 20180321
  Serious: No
  Sender: FDA-Public Use
  Company Number: None

PATIENT

DRUGS (1)
  1. HEPARIN 10,000 UNITS/10 ML [Suspect]
     Active Substance: HEPARIN SODIUM
     Indication: VENTRICULAR TACHYCARDIA
     Dosage: STRENGTH 10,000 UNITS PER 10 ML
     Route: 040

REACTIONS (1)
  - Coagulation time shortened [None]

NARRATIVE: CASE EVENT DATE: 20171122
